FAERS Safety Report 6261657-6 (Version None)
Quarter: 2009Q3

REPORT INFORMATION
  Report Type: 
  Country: None (occurrence: None)
  Receive Date: 20090709
  Receipt Date: 20090630
  Transmission Date: 20100115
  Serious: Yes (Other)
  Sender: FDA-Public Use
  Company Number: CA-JNJFOC-20090700313

PATIENT
  Sex: Male
  Weight: 117 kg

DRUGS (10)
  1. REMICADE [Suspect]
     Route: 042
  2. REMICADE [Suspect]
     Indication: SARCOIDOSIS
     Route: 042
  3. BACLOFEN [Concomitant]
  4. METHOTREXATE [Concomitant]
     Dosage: 6 TABS PER WEEK
  5. ACTONEL [Concomitant]
  6. PANTECTA [Concomitant]
  7. PREDNISONE [Concomitant]
  8. TAMSULOSIN HCL [Concomitant]
  9. GABAPENTIN [Concomitant]
  10. FOLIC ACID [Concomitant]
     Dosage: DOSE ON MONDAY AND FRIDAY

REACTIONS (3)
  - DYSPHAGIA [None]
  - DYSPHONIA [None]
  - SWELLING [None]
